FAERS Safety Report 7485658-5 (Version None)
Quarter: 2011Q2

REPORT INFORMATION
  Report Type: 
  Country: None (occurrence: None)
  Receive Date: 20110517
  Receipt Date: 20110503
  Transmission Date: 20111010
  Serious: Yes (Hospitalization, Other)
  Sender: FDA-Public Use
  Company Number: BR-JNJFOC-20110502286

PATIENT
  Sex: Female
  Weight: 61 kg

DRUGS (9)
  1. FOLIC ACID [Concomitant]
     Route: 048
  2. REMICADE [Suspect]
     Indication: PSORIATIC ARTHROPATHY
     Route: 042
  3. REMICADE [Suspect]
     Route: 042
     Dates: start: 20101119
  4. METHOTREXATE [Concomitant]
     Route: 058
  5. CALCIUM CARBONATE AND VITAMIN D [Concomitant]
     Dosage: 1000/800 MG/UI
     Route: 048
  6. REMICADE [Suspect]
     Route: 042
     Dates: start: 20110104
  7. METFORMIN HCL [Concomitant]
     Indication: DIABETES MELLITUS
     Route: 048
  8. PREDNISONE TAB [Concomitant]
  9. ACETAMINOPHEN W/ CODEINE [Concomitant]
     Dosage: 500/30 MG
     Route: 048

REACTIONS (1)
  - PNEUMONIA CRYPTOCOCCAL [None]
